FAERS Safety Report 9788236 (Version 1)
Quarter: 2013Q4

REPORT INFORMATION
  Report Type: Spontaneous
  Country: FR (occurrence: FR)
  Receive Date: 20131230
  Receipt Date: 20131230
  Transmission Date: 20140711
  Serious: Yes (Hospitalization)
  Sender: FDA-Public Use
  Company Number: FR-UCBSA-106763

PATIENT
  Age: 30 Year
  Sex: Female
  Weight: 50 kg

DRUGS (6)
  1. KEPPRA [Suspect]
     Indication: EPILEPSY
     Dosage: 3 G DAILY
     Route: 048
     Dates: start: 2013
  2. LAMICTAL [Suspect]
     Indication: EPILEPSY
     Dosage: 400 MG/24H
     Route: 048
     Dates: start: 20131112
  3. LAMICTAL [Suspect]
     Indication: EPILEPSY
     Dosage: 150 MG IN THE MORNING, 50 MG AT NOON, AND 150 MG IN THE EVENING
     Route: 048
     Dates: start: 201306, end: 201311
  4. LAMICTAL [Suspect]
     Indication: EPILEPSY
     Dosage: UNKNOWN DOSE
     Route: 048
  5. FOLIC ACID [Concomitant]
     Dosage: 5MG/24 HOURS
  6. URBANYL [Concomitant]
     Indication: CONVULSION
     Dosage: 5MG/DAY

REACTIONS (4)
  - Convulsion [Recovered/Resolved]
  - Drug clearance increased [Not Recovered/Not Resolved]
  - Underdose [Not Recovered/Not Resolved]
  - Exposure during pregnancy [Recovered/Resolved]
